FAERS Safety Report 18227382 (Version 1)
Quarter: 2020Q3

REPORT INFORMATION
  Report Type: Spontaneous
  Country: US (occurrence: US)
  Receive Date: 20200903
  Receipt Date: 20200903
  Transmission Date: 20201103
  Serious: Yes (Hospitalization)
  Sender: FDA-Public Use
  Company Number: None

PATIENT
  Age: 78 Year
  Sex: Female
  Weight: 55.3 kg

DRUGS (2)
  1. TAXOL [Suspect]
     Active Substance: PACLITAXEL
     Dates: end: 20200713
  2. CARBOPLATIN 972MG [Suspect]
     Active Substance: CARBOPLATIN
     Dates: end: 20200713

REACTIONS (12)
  - Atrial fibrillation [None]
  - Hypoaesthesia [None]
  - Palpitations [None]
  - Tachycardia [None]
  - Dizziness [None]
  - Bronchospasm [None]
  - Dyspnoea [None]
  - Cough [None]
  - Hot flush [None]
  - Back pain [None]
  - Fatigue [None]
  - Infusion related reaction [None]

NARRATIVE: CASE EVENT DATE: 20200625
